FAERS Safety Report 17412446 (Version 1)
Quarter: 2020Q1

REPORT INFORMATION
  Report Type: Spontaneous
  Country: FR (occurrence: FR)
  Receive Date: 20200213
  Receipt Date: 20200213
  Transmission Date: 20200409
  Serious: Yes (Other)
  Sender: FDA-Public Use
  Company Number: FR-SUN PHARMACEUTICAL INDUSTRIES LTD-2020RR-235850

PATIENT
  Age: 49 Year
  Sex: Female

DRUGS (6)
  1. SODIUM OXYBATE. [Suspect]
     Active Substance: SODIUM OXYBATE
     Indication: NARCOLEPSY
     Dosage: UNK
     Route: 065
  2. VENLAFAXINE [Suspect]
     Active Substance: VENLAFAXINE HYDROCHLORIDE
     Dosage: 150 MILLIGRAM, DAILY
     Route: 065
     Dates: start: 201505
  3. VENLAFAXINE [Suspect]
     Active Substance: VENLAFAXINE HYDROCHLORIDE
     Indication: NARCOLEPSY
     Dosage: UNK
     Route: 065
  4. MODAFINIL. [Suspect]
     Active Substance: MODAFINIL
     Indication: NARCOLEPSY
     Dosage: UNK
     Route: 065
  5. METHYLPHENIDATE. [Suspect]
     Active Substance: METHYLPHENIDATE
     Indication: NARCOLEPSY
     Dosage: 40 MILLIGRAM, DAILY
     Route: 065
     Dates: start: 201505
  6. PITOLISANT [Suspect]
     Active Substance: PITOLISANT
     Indication: NARCOLEPSY
     Dosage: 18 MILLIGRAM, DAILY
     Route: 065
     Dates: start: 201709

REACTIONS (3)
  - Drug interaction [Unknown]
  - Splenic infarction [Unknown]
  - Drug ineffective [Unknown]
